FAERS Safety Report 7055555-8 (Version None)
Quarter: 2010Q4

REPORT INFORMATION
  Report Type: 
  Country: None (occurrence: None)
  Receive Date: 20101021
  Receipt Date: 20101007
  Transmission Date: 20110411
  Serious: Yes (Other)
  Sender: FDA-Public Use
  Company Number: PHHY2010US49121

PATIENT
  Sex: Male
  Weight: 85.96 kg

DRUGS (2)
  1. EXJADE [Suspect]
     Indication: MYELOFIBROSIS
     Dosage: 1750 MG/AILY
     Route: 048
     Dates: start: 20100710, end: 20100923
  2. EXJADE [Suspect]
     Dosage: 1250 MG, DAILY

REACTIONS (3)
  - BLOOD COUNT ABNORMAL [None]
  - BONE MARROW DISORDER [None]
  - DIARRHOEA [None]
